APPROVED DRUG PRODUCT: RANITIDINE HYDROCHLORIDE
Active Ingredient: RANITIDINE HYDROCHLORIDE
Strength: EQ 150MG BASE
Dosage Form/Route: TABLET;ORAL
Application: A075439 | Product #001
Applicant: SUN PHARMACEUTICAL INDUSTRIES LTD
Approved: Apr 19, 2000 | RLD: No | RS: No | Type: DISCN